FAERS Safety Report 10562284 (Version 2)
Quarter: 2014Q4

REPORT INFORMATION
  Report Type: Spontaneous
  Country: IT (occurrence: None)
  Receive Date: 20141031
  Receipt Date: 20141117
  Transmission Date: 20150529
  Serious: Yes (Other)
  Sender: FDA-Public Use
  Company Number: IT2014GSK013420

PATIENT
  Age: 53 Year

DRUGS (3)
  1. SORAFENIB [Suspect]
     Active Substance: SORAFENIB
  2. FOSAMPRENAVIR [Suspect]
     Active Substance: FOSAMPRENAVIR
     Indication: HIV INFECTION
  3. EMTRICITABINE/TENOFOVIR DISOPROXIL FUMARATE [Suspect]
     Active Substance: EMTRICITABINE\TENOFOVIR DISOPROXIL
     Indication: HIV INFECTION

REACTIONS (3)
  - Hepatic failure [None]
  - Hepatotoxicity [None]
  - Drug interaction [None]
